FAERS Safety Report 8910460 (Version 2)
Quarter: 2012Q4

REPORT INFORMATION
  Report Type: 
  Country: FR (occurrence: FR)
  Receive Date: 20121115
  Receipt Date: 20121206
  Transmission Date: 20130627
  Serious: Yes (Hospitalization, Other)
  Sender: FDA-Public Use
  Company Number: FR-AMGEN-FRASP2012071947

PATIENT
  Age: 36 Year
  Sex: Male
  Weight: 80 kg

DRUGS (2)
  1. ENBREL [Suspect]
     Indication: PSORIATIC ARTHROPATHY
     Dosage: 50 mg, weekly
     Dates: start: 20111205, end: 20120919
  2. ENBREL [Suspect]
     Indication: PSORIASIS
     Dosage: UNK mg, UNK

REACTIONS (2)
  - Peritonitis bacterial [Recovered/Resolved]
  - Appendicitis [Recovered/Resolved]
